FAERS Safety Report 24967814 (Version 1)
Quarter: 2025Q1

REPORT INFORMATION
  Report Type: Spontaneous
  Country: NL (occurrence: NL)
  Receive Date: 20250214
  Receipt Date: 20250214
  Transmission Date: 20250409
  Serious: Yes (Other)
  Sender: ABBVIE
  Company Number: None

PATIENT
  Age: 33 Year
  Weight: 60 kg

DRUGS (1)
  1. CITALOPRAM [Suspect]
     Active Substance: CITALOPRAM
     Indication: Depressed mood
     Dosage: 1 X PER DAY 1 PIECE
     Route: 048

REACTIONS (5)
  - Genital hypoaesthesia [Recovering/Resolving]
  - Night sweats [Recovered/Resolved]
  - Anorgasmia [Recovering/Resolving]
  - Hypertonic bladder [Recovered/Resolved]
  - Urinary retention [Recovered/Resolved]
